FAERS Safety Report 24874927 (Version 3)
Quarter: 2025Q3

REPORT INFORMATION
  Report Type: Report from Study
  Country: US (occurrence: US)
  Receive Date: 20250122
  Receipt Date: 20250809
  Transmission Date: 20251020
  Serious: Yes (Life-Threatening)
  Sender: ALEXION PHARMACEUTICALS
  Company Number: US-AstraZeneca-CH-00785959A

PATIENT
  Sex: Female

DRUGS (2)
  1. BENRALIZUMAB [Suspect]
     Active Substance: BENRALIZUMAB
     Route: 065
  2. BENRALIZUMAB [Suspect]
     Active Substance: BENRALIZUMAB

REACTIONS (3)
  - Illness [Unknown]
  - Cough [Unknown]
  - Product dose omission issue [Unknown]
